FAERS Safety Report 24155404 (Version 3)
Quarter: 2024Q4

REPORT INFORMATION
  Report Type: Report from Study
  Country: CA (occurrence: CA)
  Receive Date: 20240731
  Receipt Date: 20241114
  Transmission Date: 20250114
  Serious: Yes (Other)
  Sender: TAKEDA
  Company Number: CA-TAKEDA-2022TUS003108

PATIENT
  Age: 58 Year
  Sex: Female

DRUGS (16)
  1. VEDOLIZUMAB [Suspect]
     Active Substance: VEDOLIZUMAB
     Indication: Crohn^s disease
     Dosage: 300 MILLIGRAM
  2. VEDOLIZUMAB [Suspect]
     Active Substance: VEDOLIZUMAB
     Dosage: 300 MILLIGRAM
  3. VEDOLIZUMAB [Suspect]
     Active Substance: VEDOLIZUMAB
     Dosage: 300 MILLIGRAM
  4. VEDOLIZUMAB [Suspect]
     Active Substance: VEDOLIZUMAB
     Dosage: 300 MILLIGRAM
  5. VEDOLIZUMAB [Suspect]
     Active Substance: VEDOLIZUMAB
     Dosage: 300 MILLIGRAM
  6. VEDOLIZUMAB [Suspect]
     Active Substance: VEDOLIZUMAB
     Dosage: 300 MILLIGRAM
  7. QUETIAPINE [Concomitant]
     Active Substance: QUETIAPINE
     Dosage: UNK
  8. MIRTAZAPINE [Concomitant]
     Active Substance: MIRTAZAPINE
     Dosage: UNK
  9. PREGABALIN [Concomitant]
     Active Substance: PREGABALIN
     Dosage: UNK
  10. SORIATANE [Concomitant]
     Active Substance: ACITRETIN
     Dosage: UNK
  11. SYMBICORT [Concomitant]
     Active Substance: BUDESONIDE\FORMOTEROL FUMARATE DIHYDRATE
     Dosage: UNK
  12. DICYCLOMINE [Concomitant]
     Active Substance: DICYCLOMINE HYDROCHLORIDE
     Dosage: UNK
  13. LOPERAMIDE [Concomitant]
     Active Substance: LOPERAMIDE
     Dosage: UNK
  14. PANTOPRAZOLE [Concomitant]
     Active Substance: PANTOPRAZOLE
     Dosage: UNK
  15. ATIVAN [Concomitant]
     Active Substance: LORAZEPAM
     Dosage: UNK
  16. TRINTELLIX [Concomitant]
     Active Substance: VORTIOXETINE HYDROBROMIDE
     Dosage: UNK

REACTIONS (11)
  - Pneumonia [Recovered/Resolved]
  - Diarrhoea [Recovered/Resolved]
  - Depression [Recovering/Resolving]
  - Abdominal pain [Not Recovered/Not Resolved]
  - Influenza [Recovering/Resolving]
  - Abdominal pain upper [Unknown]
  - Abdominal discomfort [Unknown]
  - Headache [Unknown]
  - Pyrexia [Unknown]
  - Fatigue [Unknown]
  - Cough [Unknown]

NARRATIVE: CASE EVENT DATE: 20230302
